FAERS Safety Report 4719383-8 (Version None)
Quarter: 2005Q3

REPORT INFORMATION
  Report Type: 
  Country: None (occurrence: None)
  Receive Date: 20050719
  Receipt Date: 20050719
  Transmission Date: 20060218
  Serious: Yes (Hospitalization)
  Sender: FDA-Public Use
  Company Number: None

PATIENT
  Sex: Male

DRUGS (11)
  1. MORPHINE [Suspect]
     Indication: PAIN
     Dosage: 300MG BID ORAL
     Route: 048
  2. MORPHINE [Suspect]
     Indication: PAIN
     Dosage: 300 MG BID ORAL
     Route: 048
  3. PAMIDRONATE DISODIUM [Concomitant]
  4. BISACODYL [Concomitant]
  5. MILK OF MAGNESIA [Concomitant]
  6. FELODIPINE [Concomitant]
  7. MULTI-VITAMIN [Concomitant]
  8. ASCORBIC ACID [Concomitant]
  9. SENNA [Concomitant]
  10. OMEPRAZOLE [Concomitant]
  11. LACTULOSE [Concomitant]

REACTIONS (2)
  - ABDOMINAL DISTENSION [None]
  - ABDOMINAL PAIN [None]
